FAERS Safety Report 4904732-8 (Version None)
Quarter: 2006Q1

REPORT INFORMATION
  Report Type: 
  Country: None (occurrence: None)
  Receive Date: 20060208
  Receipt Date: 20050927
  Transmission Date: 20060701
  Serious: No
  Sender: FDA-Public Use
  Company Number: US-GLAXOSMITHKLINE-A0576043A

PATIENT
  Age: 46 Year
  Sex: Female

DRUGS (10)
  1. PAXIL [Suspect]
     Indication: DEPRESSION
     Route: 048
     Dates: start: 20010101, end: 20050101
  2. PAROXETINE HCL [Suspect]
     Indication: DEPRESSION
     Dosage: 7.5MG PER DAY
     Route: 048
     Dates: start: 20050101
  3. ALLEGRA [Concomitant]
  4. MULTI-VITAMIN [Concomitant]
  5. CALCIUM GLUCONATE [Concomitant]
  6. MAGNESIUM [Concomitant]
  7. ZINC [Concomitant]
  8. VITAMIN B COMPLEX CAP [Concomitant]
  9. VITAMIN B-12 [Concomitant]
  10. BECONASE [Concomitant]

REACTIONS (1)
  - ALOPECIA [None]
